FAERS Safety Report 6136513-4 (Version None)
Quarter: 2009Q1

REPORT INFORMATION
  Report Type: 
  Country: None (occurrence: None)
  Receive Date: 20090330
  Receipt Date: 20090317
  Transmission Date: 20090719
  Serious: Yes (Death, Other)
  Sender: FDA-Public Use
  Company Number: US-PFIZER INC-2005121001

PATIENT
  Sex: Female
  Weight: 61 kg

DRUGS (5)
  1. PROVERA [Suspect]
     Indication: HORMONE REPLACEMENT THERAPY
     Dosage: UNK
     Route: 048
     Dates: start: 19770101, end: 20020701
  2. PREMARIN [Suspect]
     Indication: HORMONE REPLACEMENT THERAPY
     Dosage: UNK
     Dates: start: 19770101, end: 20020701
  3. PREMPHASE 14/14 [Suspect]
     Indication: HORMONE REPLACEMENT THERAPY
     Dosage: UNK
     Dates: start: 19980211, end: 20001206
  4. XANAX [Concomitant]
     Indication: ANXIETY
     Dosage: UNK
     Dates: end: 20060101
  5. CALCITRATE [Concomitant]
     Indication: OSTEOPENIA
     Dosage: UNK
     Dates: start: 20010501, end: 20060101

REACTIONS (2)
  - BREAST CANCER FEMALE [None]
  - LUNG NEOPLASM MALIGNANT [None]
